FAERS Safety Report 8774765 (Version 2)
Quarter: 2012Q4

REPORT INFORMATION
  Report Type: 
  Country: FR (occurrence: FR)
  Receive Date: 20120910
  Receipt Date: 20120920
  Transmission Date: 20130627
  Serious: Yes (Other)
  Sender: FDA-Public Use
  Company Number: FR-JNJFOC-20120700839

PATIENT
  Age: 81 Year
  Sex: Female

DRUGS (3)
  1. DUROGESIC [Suspect]
     Indication: PAIN
     Route: 062
     Dates: start: 20120629
  2. DUROGESIC [Suspect]
     Indication: PAIN
     Route: 062
  3. DUROGESIC [Suspect]
     Indication: PAIN
     Route: 062
     Dates: end: 20120629

REACTIONS (6)
  - Fall [Recovered/Resolved]
  - Vertigo [Unknown]
  - Vomiting [Recovered/Resolved]
  - Decreased appetite [Recovered/Resolved]
  - Feeling abnormal [Unknown]
  - Nausea [Unknown]
